FAERS Safety Report 6922657-3 (Version None)
Quarter: 2010Q3

REPORT INFORMATION
  Report Type: 
  Country: None (occurrence: None)
  Receive Date: 20100813
  Receipt Date: 20100802
  Transmission Date: 20110219
  Serious: Yes (Other)
  Sender: FDA-Public Use
  Company Number: PHHY2010JP39623

PATIENT
  Age: 68 Year
  Sex: Male

DRUGS (7)
  1. ZOMETA [Suspect]
     Indication: METASTASES TO BONE
     Dosage: 4 MG, UNK
     Route: 041
     Dates: start: 20080206
  2. DEXAMETHASONE [Suspect]
     Indication: PROSTATE CANCER
     Dosage: 1 MG, UNK
     Route: 065
  3. DEXAMETHASONE [Suspect]
     Dosage: 1.5 MG, UNK
  4. DIETHYLSTILBESTROL DIPROPIONATE [Concomitant]
     Indication: PROSTATE CANCER
     Dosage: 10 G, UNK
  5. ESTRAMUSTINE PHOSPHATE SODIUM [Concomitant]
     Indication: PROSTATE CANCER
     Route: 048
  6. DOCETAXEL [Concomitant]
     Indication: PROSTATE CANCER
     Dosage: 80 MG, UNK
     Route: 041
     Dates: start: 20081101
  7. DOCETAXEL [Concomitant]
     Dosage: 70MG

REACTIONS (7)
  - BLOOD AMYLASE INCREASED [None]
  - BONE MARROW FAILURE [None]
  - MALIGNANT NEOPLASM PROGRESSION [None]
  - METASTASES TO LUNG [None]
  - NEUTROPENIA [None]
  - PLEURAL EFFUSION [None]
  - PROSTATIC SPECIFIC ANTIGEN INCREASED [None]
